FAERS Safety Report 4822084-9 (Version None)
Quarter: 2005Q4

REPORT INFORMATION
  Report Type: 
  Country: None (occurrence: None)
  Receive Date: 20051103
  Receipt Date: 20051020
  Transmission Date: 20060501
  Serious: Yes (Other)
  Sender: FDA-Public Use
  Company Number: GB-2005-021998

PATIENT
  Sex: Female

DRUGS (1)
  1. MIRENA [Suspect]
     Dosage: INTRA-UTERINE
     Route: 015
     Dates: start: 20051018

REACTIONS (5)
  - CEREBRAL THROMBOSIS [None]
  - EAR INFECTION [None]
  - MALAISE [None]
  - MENIERE'S DISEASE [None]
  - VOMITING [None]
